FAERS Safety Report 18588247 (Version 1)
Quarter: 2020Q4

REPORT INFORMATION
  Report Type: Spontaneous
  Country: US (occurrence: US)
  Receive Date: 20201207
  Receipt Date: 20201207
  Transmission Date: 20210114
  Serious: Yes (Hospitalization)
  Sender: FDA-Public Use
  Company Number: US-STASON PHARMACEUTICALS, INC.-2100718

PATIENT
  Age: 14 Year
  Sex: Male
  Weight: 88.4 kg

DRUGS (1)
  1. MERCAPTOPURINE. [Suspect]
     Active Substance: MERCAPTOPURINE

REACTIONS (4)
  - Vomiting [None]
  - Pyrexia [None]
  - Nausea [None]
  - Anaphylactic reaction [None]
